FAERS Safety Report 4616785-5 (Version None)
Quarter: 2005Q2

REPORT INFORMATION
  Report Type: 
  Country: None (occurrence: None)
  Receive Date: 20050311
  Receipt Date: 20050107
  Transmission Date: 20051028
  Serious: Yes (Death, Hospitalization)
  Sender: FDA-Public Use
  Company Number: 2005-00024

PATIENT
  Age: 58 Year
  Sex: Female
  Weight: 65.8 kg

DRUGS (5)
  1. VELCADE [Suspect]
     Indication: MULTIPLE MYELOMA
     Dosage: INTRAVENOUS
     Route: 042
     Dates: start: 20040801, end: 20041201
  2. PROCRIT [Concomitant]
  3. ACETAMINOPHEN W/ CODEINE [Concomitant]
  4. STEROIDS [Concomitant]
  5. HORMONE REPLACEMENT [Concomitant]

REACTIONS (9)
  - ASTHENIA [None]
  - CEREBRAL HAEMORRHAGE [None]
  - CONTUSION [None]
  - CONVULSION [None]
  - HEMIPLEGIA [None]
  - PAIN IN JAW [None]
  - PLATELET COUNT DECREASED [None]
  - RESPIRATORY ARREST [None]
  - WEIGHT DECREASED [None]
